FAERS Safety Report 12783998 (Version 1)
Quarter: 2016Q3

REPORT INFORMATION
  Report Type: Report from Study
  Country: AR (occurrence: AR)
  Receive Date: 20160927
  Receipt Date: 20160927
  Transmission Date: 20161109
  Serious: Yes (Other)
  Sender: FDA-Public Use
  Company Number: AR-GLAXOSMITHKLINE-AR2016GSK140491

PATIENT
  Sex: Female

DRUGS (6)
  1. MEDROXIPROGESTERONA [Concomitant]
     Indication: CONTRACEPTION
  2. BELIMUMAB [Suspect]
     Active Substance: BELIMUMAB
     Indication: SYSTEMIC LUPUS ERYTHEMATOSUS
     Dosage: 10 MG/KG, CYC
     Route: 042
     Dates: start: 20151209, end: 20160720
  3. DIFENHIDRAMINA [Concomitant]
     Indication: PREMEDICATION
     Dosage: 50 MG, CYC
     Route: 048
     Dates: start: 20151209, end: 20160720
  4. PREDNISONE. [Concomitant]
     Active Substance: PREDNISONE
     Indication: ARTHRITIS
     Dosage: 10 MG, QD
     Route: 048
     Dates: start: 20140901
  5. HYDROXYCHLOROQUINE [Concomitant]
     Active Substance: HYDROXYCHLOROQUINE
     Indication: SYSTEMIC LUPUS ERYTHEMATOSUS
     Dosage: 400 MG, QD
     Dates: start: 20140901
  6. PARACETAMOL [Concomitant]
     Active Substance: ACETAMINOPHEN
     Indication: PREMEDICATION
     Dosage: 1 G, CYC
     Route: 048
     Dates: start: 20151209, end: 20160720

REACTIONS (3)
  - Abortion spontaneous [Unknown]
  - Exposure during pregnancy [Unknown]
  - Uterine haemorrhage [Unknown]
